FAERS Safety Report 18843231 (Version 1)
Quarter: 2021Q1

REPORT INFORMATION
  Report Type: Report from Study
  Country: US (occurrence: US)
  Receive Date: 20210203
  Receipt Date: 20210203
  Transmission Date: 20210419
  Serious: No
  Sender: FDA-Public Use
  Company Number: US-EXELIXIS-CABO-20026695

PATIENT
  Sex: Male

DRUGS (1)
  1. CABOMETYX [Suspect]
     Active Substance: CABOZANTINIB S-MALATE
     Indication: RENAL CANCER
     Dosage: 40 MG, QD
     Dates: start: 20191226

REACTIONS (10)
  - Dry mouth [Recovered/Resolved]
  - Blood pressure increased [Recovered/Resolved]
  - Blood creatine increased [Unknown]
  - Constipation [Recovering/Resolving]
  - Arthritis [Unknown]
  - Dizziness [Recovered/Resolved]
  - Tinea pedis [Recovered/Resolved]
  - Pain in jaw [Unknown]
  - Sinusitis [Recovered/Resolved]
  - Metastases to lung [Unknown]
